FAERS Safety Report 9762432 (Version 1)
Quarter: 2013Q4

REPORT INFORMATION
  Report Type: Spontaneous
  Country: IT (occurrence: None)
  Receive Date: 20131213
  Receipt Date: 20131213
  Transmission Date: 20140711
  Serious: Yes (Life-Threatening)
  Sender: FDA-Public Use
  Company Number: 2060183

PATIENT
  Age: 47 Year
  Sex: Female
  Weight: 84 kg

DRUGS (1)
  1. DOCETAXEL [Suspect]
     Indication: BREAST CANCER
     Dosage: 140 MG MILLIGRAM(S), CYCLICAL, INTRAVENOUS
     Route: 041
     Dates: start: 20131011, end: 20131105

REACTIONS (5)
  - Tinnitus [None]
  - Pain [None]
  - Dyspnoea [None]
  - Chest discomfort [None]
  - Back pain [None]
